FAERS Safety Report 19861228 (Version 1)
Quarter: 2021Q3

REPORT INFORMATION
  Report Type: Spontaneous
  Country: BR (occurrence: BR)
  Receive Date: 20210920
  Receipt Date: 20210920
  Transmission Date: 20211014
  Serious: Yes (Hospitalization, Other)
  Sender: FDA-Public Use
  Company Number: BR-TAKEDA-2021TUS057659

PATIENT
  Age: 68 Year
  Sex: Female

DRUGS (1)
  1. DEXILANT [Suspect]
     Active Substance: DEXLANSOPRAZOLE
     Indication: GASTROOESOPHAGEAL REFLUX DISEASE
     Dosage: 60 MILLIGRAM, QD
     Route: 065

REACTIONS (7)
  - Oedema [Unknown]
  - Peripheral swelling [Unknown]
  - Vision blurred [Unknown]
  - Oedema peripheral [Unknown]
  - Dizziness [Unknown]
  - Thrombosis [Unknown]
  - Off label use [Unknown]
